FAERS Safety Report 20701296 (Version 1)
Quarter: 2022Q2

REPORT INFORMATION
  Report Type: Spontaneous
  Country: ES (occurrence: ES)
  Receive Date: 20220412
  Receipt Date: 20220412
  Transmission Date: 20220721
  Serious: Yes (Life-Threatening)
  Sender: FDA-Public Use
  Company Number: None

PATIENT
  Age: 73 Year
  Sex: Female

DRUGS (8)
  1. IMATINIB [Suspect]
     Active Substance: IMATINIB
     Indication: Chronic myeloid leukaemia
     Dosage: 400.0 MG A-DE, (2833A)
     Route: 048
     Dates: start: 20210917
  2. AMLODIPINE TARBIS FARMA [Concomitant]
     Indication: Essential hypertension
     Dosage: 10.0 MG CE, AMLODIPINE TARBIS FARMA 10 MG TABLETS EFG, 30 TABLETS
     Route: 048
     Dates: start: 20181119
  3. ACETAMINOPHEN [Concomitant]
     Active Substance: ACETAMINOPHEN
     Indication: Product used for unknown indication
     Dosage: 1.0 G DECOCE, DOLOCATIL 1 G TABLETS EFG, 40 TABLETS
     Route: 048
     Dates: start: 20210818
  4. CANDESARTAN CILEXETIL\HYDROCHLOROTHIAZIDE [Concomitant]
     Active Substance: CANDESARTAN CILEXETIL\HYDROCHLOROTHIAZIDE
     Indication: Essential hypertension
     Dosage: 1.0 COMP DE, ATACAND PLUS 32 MG/12.5 MG , 28 TABLETS
     Route: 048
     Dates: start: 20181219
  5. NOLOTIL [Concomitant]
     Indication: Systemic lupus erythematosus
     Dosage: 1150.0 MG C/6 HOURS, NOLOTIL 575 MG HARD CAPSULES, 20 CAPSULES
     Route: 048
     Dates: start: 20080903
  6. ZADITEN [Concomitant]
     Active Substance: KETOTIFEN FUMARATE
     Indication: Conjunctivitis allergic
     Dosage: 1.0 GTS C/12 H, ZADITEN 0.25 MG/ML EYE DROPS, SOLUTION IN UNIT-DOSE CONTAINER, 20 UNIT-DOSE CONTAINE
     Route: 047
     Dates: start: 20211018
  7. SPIRIVA RESPIMAT [Concomitant]
     Active Substance: TIOTROPIUM BROMIDE
     Indication: Bronchitis chronic
     Dosage: 2.0 PUFF C/24 H, SPIRIVA RESPIMAT 2.5 MICROGRAMS, 1 REFILLABLE INHALER + 1 CARTRIDGE OF 60 PUFFS (30
     Route: 050
     Dates: start: 20180109
  8. ZOLPIDEM TARTRATE [Concomitant]
     Active Substance: ZOLPIDEM TARTRATE
     Indication: Insomnia
     Dosage: 10.0 MG C/24 H NOC, STILNOX 10 MG, 30 TABLETS
     Route: 048
     Dates: start: 20080903

REACTIONS (1)
  - Hepatocellular injury [Unknown]

NARRATIVE: CASE EVENT DATE: 20211221
